FAERS Safety Report 7144214-9 (Version None)
Quarter: 2010Q4

REPORT INFORMATION
  Report Type: 
  Country: None (occurrence: None)
  Receive Date: 20101208
  Receipt Date: 20101107
  Transmission Date: 20110411
  Serious: No
  Sender: FDA-Public Use
  Company Number: US-BAYER-201023616BCC

PATIENT
  Sex: Female

DRUGS (2)
  1. ALEVE (CAPLET) [Suspect]
     Indication: OSTEOARTHRITIS
     Dosage: 220 MG, QD
     Route: 048
     Dates: start: 20101017
  2. AMBIEN [Concomitant]
     Dosage: 6.25 MG, PRN

REACTIONS (1)
  - MUSCLE SPASMS [None]
